FAERS Safety Report 18174279 (Version 1)
Quarter: 2020Q3

REPORT INFORMATION
  Report Type: Spontaneous
  Country: JP (occurrence: JP)
  Receive Date: 20200820
  Receipt Date: 20200820
  Transmission Date: 20201103
  Serious: Yes (Other)
  Sender: FDA-Public Use
  Company Number: JP-TEVA-2020-JP-1817465

PATIENT
  Age: 7 Decade
  Sex: Male

DRUGS (10)
  1. BENZALIN [Concomitant]
  2. ALINAMIN F [Concomitant]
     Active Substance: FURSULTIAMINE HYDROCHLORIDE
  3. METHYCOBAL [Concomitant]
     Active Substance: METHYLCOBALAMIN
  4. ZONISAMIDE. [Concomitant]
     Active Substance: ZONISAMIDE
  5. EDIROL [Concomitant]
     Active Substance: ELDECALCITOL
  6. DUODOPA [Concomitant]
     Active Substance: CARBIDOPA\LEVODOPA
  7. AZILECT [Suspect]
     Active Substance: RASAGILINE MESYLATE
     Indication: PARKINSON^S DISEASE
     Route: 048
     Dates: start: 20190625, end: 20200422
  8. ETIZOLAM [Concomitant]
     Active Substance: ETIZOLAM
  9. QUETIAPINE. [Concomitant]
     Active Substance: QUETIAPINE
  10. PYDOXAL [Concomitant]
     Active Substance: PYRIDOXAL

REACTIONS (1)
  - Neuropathy peripheral [Not Recovered/Not Resolved]

NARRATIVE: CASE EVENT DATE: 201909
